FAERS Safety Report 9902881 (Version 1)
Quarter: 2014Q1

REPORT INFORMATION
  Report Type: Spontaneous
  Country: DE (occurrence: DE)
  Receive Date: 20140217
  Receipt Date: 20140217
  Transmission Date: 20141002
  Serious: Yes (Other)
  Sender: FDA-Public Use
  Company Number: PHHY2014DE018178

PATIENT
  Sex: Female

DRUGS (1)
  1. LEPONEX [Suspect]
     Dosage: UNK

REACTIONS (1)
  - Osteitis [Unknown]
